FAERS Safety Report 17628278 (Version 2)
Quarter: 2020Q2

REPORT INFORMATION
  Report Type: Spontaneous
  Country: US (occurrence: US)
  Receive Date: 20200406
  Receipt Date: 20200521
  Transmission Date: 20200713
  Serious: No
  Sender: FDA-Public Use
  Company Number: US-ASTRAZENECA-2020SE45865

PATIENT
  Age: 881 Month
  Sex: Male
  Weight: 65.8 kg

DRUGS (4)
  1. SYMBICORT [Suspect]
     Active Substance: BUDESONIDE\FORMOTEROL FUMARATE DIHYDRATE
     Indication: EMPHYSEMA
     Dosage: 160/4.5 MCG, 2 PUFFS, TWICE DAILY
     Route: 055
     Dates: start: 202003
  2. SYMBICORT [Suspect]
     Active Substance: BUDESONIDE\FORMOTEROL FUMARATE DIHYDRATE
     Indication: CHRONIC OBSTRUCTIVE PULMONARY DISEASE
     Dosage: 160/4.5 MCG, 2 PUFFS, TWICE DAILY
     Route: 055
     Dates: start: 202003
  3. ALBUTEROL. [Concomitant]
     Active Substance: ALBUTEROL
     Indication: EMPHYSEMA
     Dosage: AS REQUIRED EVERY 4-6 HOURS
     Route: 055
  4. HYDROCODONE [Concomitant]
     Active Substance: HYDROCODONE
     Indication: INTERVERTEBRAL DISC PROTRUSION
     Dosage: 160/4.5 MCG, 2 PUFFS, TWICE DAILY
     Route: 048

REACTIONS (10)
  - Oropharyngeal pain [Unknown]
  - Headache [Unknown]
  - Product availability issue [Unknown]
  - Intentional device misuse [Unknown]
  - Product use issue [Unknown]
  - Secretion discharge [Unknown]
  - Device issue [Unknown]
  - Product prescribing issue [Unknown]
  - Pulmonary pain [Unknown]
  - Wrong technique in device usage process [Unknown]

NARRATIVE: CASE EVENT DATE: 202003
